FAERS Safety Report 23564177 (Version 1)
Quarter: 2024Q1

REPORT INFORMATION
  Report Type: Report from Study
  Country: US (occurrence: US)
  Receive Date: 20240226
  Receipt Date: 20240226
  Transmission Date: 20240410
  Serious: Yes (Hospitalization)
  Sender: FDA-Public Use
  Company Number: US-ULTRAGENYX PHARMACEUTICAL INC.-US-UGX-24-00031

PATIENT
  Age: 6 Year
  Sex: Female

DRUGS (1)
  1. DOJOLVI [Suspect]
     Active Substance: TRIHEPTANOIN
     Indication: Fatty acid oxidation disorder
     Dosage: 9 MILLILITER, Q4H (SIX TIMES DAILY)
     Route: 048
     Dates: start: 202101

REACTIONS (6)
  - Hospitalisation [Unknown]
  - Illness [Unknown]
  - Pneumonia [Unknown]
  - Blood glucose abnormal [Unknown]
  - Drug intolerance [Unknown]
  - Product preparation issue [Unknown]

NARRATIVE: CASE EVENT DATE: 20240102
